FAERS Safety Report 6620401-0 (Version None)
Quarter: 2010Q1

REPORT INFORMATION
  Report Type: 
  Country: None (occurrence: None)
  Receive Date: 20100304
  Receipt Date: 20100218
  Transmission Date: 20100710
  Serious: Yes (Death)
  Sender: FDA-Public Use
  Company Number: KV201000065

PATIENT
  Age: 27 Year
  Sex: Female

DRUGS (25)
  1. MORPHINE SULFATE [Suspect]
     Indication: DRUG USE FOR UNKNOWN INDICATION
     Dosage: 1 TAB BID, ORAL
     Route: 048
     Dates: start: 20070703
  2. MORPHINE SULFATE [Suspect]
     Indication: DRUG USE FOR UNKNOWN INDICATION
     Dosage: 0.2-.4ML Q HOUR PRN, ORAL
     Route: 048
     Dates: start: 20070612
  3. PROPOXYPHENE-N (DEXTROPROPOXYPHENE HYDROCHLORIDE) [Concomitant]
  4. TIZANIDINE HCL [Concomitant]
  5. PREDNISONE [Concomitant]
  6. DANTROLENE SODIUM [Concomitant]
  7. WELLBUTRIN XL [Concomitant]
  8. BACLOFEN [Concomitant]
  9. GABAPENTIN [Concomitant]
  10. PAROXETINE HCL [Concomitant]
  11. HYDROCODONE W/APAP (HYDROCODONE, PARACETAMOL) [Concomitant]
  12. PROMETHAZINE [Concomitant]
  13. CIPROFLOXACIN [Concomitant]
  14. LORAZEPAM [Concomitant]
  15. AMOXCLAV  /008525011 (AMOXICILLIN, CLAVULANIC ACID) [Concomitant]
  16. VANCOMYCIN HCL [Concomitant]
  17. OXYCODONE HCL [Concomitant]
  18. OXYCODONE WITH APAP (OXYCODONE HYDROCHLORIDE, PARACETAMOL) [Concomitant]
  19. KETOROLAC (KETOROLAC) [Concomitant]
  20. BUPROPION HYDROCHLORIDE [Concomitant]
  21. DANTRIUM [Suspect]
  22. RANITIDINE [Concomitant]
  23. DIAZEPAM [Concomitant]
  24. ETHEZYME (PAPAIN, UREA) [Concomitant]
  25. ALPRAZOLAM [Concomitant]

REACTIONS (4)
  - HYPERTENSION [None]
  - MULTIPLE SCLEROSIS [None]
  - PNEUMONIA [None]
  - REFLUX OESOPHAGITIS [None]
